FAERS Safety Report 8896255 (Version 1)
Quarter: 2012Q4

REPORT INFORMATION
  Report Type: Spontaneous
  Country: US (occurrence: None)
  Receive Date: 20121106
  Receipt Date: 20121106
  Transmission Date: 20130627
  Serious: Yes (Life-Threatening)
  Sender: FDA-Public Use
  Company Number: None

PATIENT
  Age: 61 Year
  Sex: Female
  Weight: 77.11 kg

DRUGS (1)
  1. WELCHOL [Suspect]
     Indication: HIGH CHOLESTEROL
     Dosage: 3 625mg tablets Twice daily
     Dates: start: 20120901, end: 20121010

REACTIONS (4)
  - Blood pressure increased [None]
  - Fibromyalgia [None]
  - Drug withdrawal syndrome [None]
  - Inhibitory drug interaction [None]
